FAERS Safety Report 5207701-6 (Version None)
Quarter: 2007Q1

REPORT INFORMATION
  Report Type: 
  Country: None (occurrence: None)
  Receive Date: 20070112
  Receipt Date: 20070102
  Transmission Date: 20070707
  Serious: Yes (Death, Other)
  Sender: FDA-Public Use
  Company Number: US-PFIZER INC-2007001346

PATIENT
  Sex: Male

DRUGS (2)
  1. GEODON [Suspect]
  2. LEXAPRO [Concomitant]

REACTIONS (2)
  - ALCOHOLISM [None]
  - DEATH [None]
